FAERS Safety Report 7008796-X (Version None)
Quarter: 2010Q3

REPORT INFORMATION
  Report Type: 
  Country: None (occurrence: None)
  Receive Date: 20100921
  Receipt Date: 20100908
  Transmission Date: 20110219
  Serious: Yes (Other)
  Sender: FDA-Public Use
  Company Number: BR-1183129

PATIENT
  Age: 39 Year
  Sex: Female

DRUGS (9)
  1. AZOPT [Suspect]
     Indication: GLAUCOMA
     Dosage: 1 GTT BID OU OPHTHALMIC
     Route: 047
     Dates: start: 20090101
  2. FRESH TEARS (TEARS PLUS) [Concomitant]
  3. INSULIN (INSULIN) [Concomitant]
  4. ENALAPRIL MALEATE [Concomitant]
  5. METFORMIN HCL [Concomitant]
  6. OMEPRAZOLE [Concomitant]
  7. ASPIRIN [Concomitant]
  8. DIAZEPAM [Concomitant]
  9. POLARAMINE [Concomitant]

REACTIONS (6)
  - CHEST PAIN [None]
  - DEPRESSION [None]
  - DYSPNOEA [None]
  - INSOMNIA [None]
  - PAIN [None]
  - RENAL PAIN [None]
